FAERS Safety Report 9170976 (Version 1)
Quarter: 2013Q1

REPORT INFORMATION
  Report Type: Report from Study
  Country: CH (occurrence: CH)
  Receive Date: 20130319
  Receipt Date: 20130319
  Transmission Date: 20140127
  Serious: Yes (Other)
  Sender: FDA-Public Use
  Company Number: CH-ASTELLAS-2013EU002405

PATIENT
  Age: 69 Year
  Sex: Male
  Weight: 60 kg

DRUGS (1)
  1. TACROLIMUS SYSTEMIC [Suspect]
     Indication: LIVER TRANSPLANT
     Dosage: UNK
     Route: 048

REACTIONS (6)
  - Medication error [Unknown]
  - Overdose [Unknown]
  - Tremor [Recovered/Resolved]
  - Encephalopathy [Recovered/Resolved]
  - Extrapyramidal disorder [Recovered/Resolved]
  - Renal impairment [Recovered/Resolved]
